FAERS Safety Report 5008069-0 (Version None)
Quarter: 2006Q1

REPORT INFORMATION
  Report Type: 
  Country: None (occurrence: None)
  Receive Date: 20060329
  Receipt Date: 20060215
  Transmission Date: 20060701
  Serious: Yes (Hospitalization, Other)
  Sender: FDA-Public Use
  Company Number: 2006-CZ-00682

PATIENT
  Age: 75 Year
  Sex: Male
  Weight: 84 kg

DRUGS (6)
  1. GABAPENTIN [Suspect]
     Indication: POST HERPETIC NEURALGIA
     Dosage: SEE IMAGE
  2. FUROSEMIDE [Concomitant]
  3. CARVEDILOL [Concomitant]
  4. RAMIPRIL [Concomitant]
  5. ACETYLSALICYLIC ACID SRT [Concomitant]
  6. ACYCLOVIR [Concomitant]

REACTIONS (5)
  - ASTERIXIS [None]
  - MENTAL STATUS CHANGES [None]
  - MUSCLE SPASMS [None]
  - MYOCLONUS [None]
  - NEUROTOXICITY [None]
